FAERS Safety Report 9029515 (Version 2)
Quarter: 2013Q2

REPORT INFORMATION
  Report Type: Spontaneous
  Country: US (occurrence: US)
  Receive Date: 20130125
  Receipt Date: 20130531
  Transmission Date: 20140414
  Serious: Yes (Hospitalization, Other)
  Sender: FDA-Public Use
  Company Number: US-009507513-1301USA009813

PATIENT
  Age: 21 Year
  Sex: Female

DRUGS (3)
  1. RIBAVIRIN [Suspect]
     Indication: HEPATITIS C
     Dosage: UNK
     Route: 048
     Dates: start: 20121026
  2. VICTRELIS [Suspect]
     Indication: HEPATITIS C
     Dosage: UNK
     Route: 048
     Dates: start: 20121129
  3. PEGASYS [Suspect]
     Indication: HEPATITIS C
     Dosage: UNK
     Dates: start: 20121031

REACTIONS (10)
  - Dehydration [Unknown]
  - Influenza [Unknown]
  - Vomiting [Unknown]
  - Blood disorder [Unknown]
  - Skin disorder [Unknown]
  - Memory impairment [Unknown]
  - Influenza [Unknown]
  - Asthenia [Unknown]
  - Anaemia [Unknown]
  - Vomiting [Unknown]
